FAERS Safety Report 22531190 (Version 1)
Quarter: 2023Q2

REPORT INFORMATION
  Report Type: Spontaneous
  Country: US (occurrence: None)
  Receive Date: 20230606
  Receipt Date: 20230606
  Transmission Date: 20230722
  Serious: Yes (Hospitalization)
  Sender: FDA-Public Use
  Company Number: None

PATIENT
  Age: 72 Year
  Sex: Female
  Weight: 72.9 kg

DRUGS (12)
  1. ENVARSUS XR [Suspect]
     Active Substance: TACROLIMUS
     Indication: Renal transplant
     Dosage: FREQUENCY : DAILY;?
     Route: 048
     Dates: start: 20230126
  2. MYCOPHENOLIC ACID [Suspect]
     Active Substance: MYCOPHENOLIC ACID
     Indication: Renal transplant
     Dosage: FREQUENCY : TWICE A DAY;?
     Route: 048
     Dates: start: 20221212
  3. ASPIRIN [Concomitant]
     Active Substance: ASPIRIN
     Dates: start: 20221212
  4. CARVEDILOL [Concomitant]
     Active Substance: CARVEDILOL
  5. DULOXETINE [Concomitant]
     Active Substance: DULOXETINE
     Dates: start: 20221212
  6. K PHOS NEUTRAL [Concomitant]
     Active Substance: POTASSIUM PHOSPHATE, MONOBASIC\SODIUM PHOSPHATE, DIBASIC, ANHYDROUS\SODIUM PHOSPHATE, MONOBASIC, MON
     Dates: start: 20221212
  7. Mag-Tab SR 84 mg [Concomitant]
     Dates: start: 20221212
  8. PREDNISONE [Concomitant]
     Active Substance: PREDNISONE
     Dates: start: 20221212
  9. Sulfamethoxazole/Trimethoprim 400-800 mg [Concomitant]
     Dates: start: 20221212
  10. Valganciclovir 450 mg [Concomitant]
     Dates: start: 20221212, end: 20230404
  11. TACROLIMUS [Concomitant]
     Active Substance: TACROLIMUS
     Dates: start: 20221212, end: 20230126
  12. Cinacalcet 30 mg [Concomitant]
     Dates: start: 20230501

REACTIONS (1)
  - Nephrolithiasis [None]

NARRATIVE: CASE EVENT DATE: 20230605
